FAERS Safety Report 13974231 (Version 1)
Quarter: 2017Q3

REPORT INFORMATION
  Report Type: Spontaneous
  Country: GB (occurrence: GB)
  Receive Date: 20170914
  Receipt Date: 20170914
  Transmission Date: 20171128
  Serious: Yes (Hospitalization, Other)
  Sender: FDA-Public Use
  Company Number: GB-PFIZER INC-675080

PATIENT
  Age: 13 Month

DRUGS (3)
  1. VINCRISTINE SULFATE. [Suspect]
     Active Substance: VINCRISTINE SULFATE
     Indication: CHOROID PLEXUS CARCINOMA
     Dosage: 1.5 MG/M2, CYCLIC
  2. CYCLOPHOSPHAMIDE. [Suspect]
     Active Substance: CYCLOPHOSPHAMIDE
     Indication: CHOROID PLEXUS CARCINOMA
     Dosage: 1000 MG/M2, CYCLIC
  3. ETOPOSIDE. [Suspect]
     Active Substance: ETOPOSIDE
     Indication: CHOROID PLEXUS CARCINOMA
     Dosage: 100 MG/M2, UNK

REACTIONS (1)
  - Pneumococcal infection [Recovered/Resolved with Sequelae]
